FAERS Safety Report 5515526-7 (Version None)
Quarter: 2007Q4

REPORT INFORMATION
  Report Type: 
  Country: None (occurrence: None)
  Receive Date: 20071113
  Receipt Date: 20070809
  Transmission Date: 20080405
  Serious: No
  Sender: FDA-Public Use
  Company Number: A0643713A

PATIENT
  Age: 80 Year
  Sex: Female

DRUGS (8)
  1. COREG [Suspect]
     Indication: ATRIAL FIBRILLATION
     Dosage: 25MG TWICE PER DAY
     Route: 048
     Dates: start: 20060101
  2. COREG CR [Suspect]
     Dosage: 20MG PER DAY
     Route: 048
     Dates: start: 20070701
  3. COUMADIN [Concomitant]
  4. TRIAMTERENE [Concomitant]
  5. LORATADINE [Concomitant]
  6. VOLTAREN [Concomitant]
  7. UNKNOWN MEDICATION [Concomitant]
  8. MEDICATION FOR FLUID RETENTION [Concomitant]

REACTIONS (4)
  - DIZZINESS [None]
  - FALL [None]
  - GAIT DISTURBANCE [None]
  - NAUSEA [None]
